FAERS Safety Report 6445951-1 (Version None)
Quarter: 2009Q4

REPORT INFORMATION
  Report Type: 
  Country: None (occurrence: None)
  Receive Date: 20091119
  Receipt Date: 20090305
  Transmission Date: 20100525
  Serious: No
  Sender: FDA-Public Use
  Company Number: A0771859A

PATIENT
  Age: 44 Year
  Sex: Female

DRUGS (8)
  1. BUPROPION HYDROCHLORIDE [Suspect]
     Dosage: 150MG TWICE PER DAY
     Route: 048
     Dates: start: 20041108, end: 20041110
  2. KLONOPIN [Concomitant]
  3. MINOCYCLINE [Concomitant]
  4. ULTRACET [Concomitant]
  5. ETODOLAC [Concomitant]
  6. LEVOXYL [Concomitant]
  7. GUAIFENESIN [Concomitant]
  8. AUGMENTIN '125' [Concomitant]

REACTIONS (1)
  - DRUG INEFFECTIVE [None]
